FAERS Safety Report 17202641 (Version 1)
Quarter: 2019Q4

REPORT INFORMATION
  Report Type: Spontaneous
  Country: FR (occurrence: FR)
  Receive Date: 20191226
  Receipt Date: 20191226
  Transmission Date: 20200122
  Serious: Yes (Other)
  Sender: FDA-Public Use
  Company Number: FR-MYLANLABS-2019M1126259

PATIENT
  Age: 43 Year
  Sex: Female
  Weight: 101.1 kg

DRUGS (11)
  1. CYTARABINE. [Concomitant]
     Active Substance: CYTARABINE
  2. LEVOTHYROX [Concomitant]
     Active Substance: LEVOTHYROXINE
  3. BICARBONATE DE SODIUM AGUETTANT [Concomitant]
     Active Substance: SODIUM BICARBONATE
  4. LUTENYL [Concomitant]
     Active Substance: NOMEGESTROL ACETATE
  5. METHOTREXATE. [Concomitant]
     Active Substance: METHOTREXATE
     Indication: ACUTE LYMPHOCYTIC LEUKAEMIA
     Route: 037
  6. METHOTREXATE MYLAN [Suspect]
     Active Substance: METHOTREXATE SODIUM
     Indication: ACUTE LYMPHOCYTIC LEUKAEMIA
     Dosage: 1G/M?
     Route: 042
  7. DIFFU K [Concomitant]
     Active Substance: POTASSIUM CHLORIDE
  8. ZELITREX [Concomitant]
     Active Substance: VALACYCLOVIR HYDROCHLORIDE
  9. SPECIAFOLDINE [Concomitant]
     Active Substance: FOLIC ACID
  10. FOLINATE DE CALCIUM [Concomitant]
     Active Substance: LEUCOVORIN CALCIUM
  11. GLIVEC [Concomitant]
     Active Substance: IMATINIB MESYLATE

REACTIONS (3)
  - Chemotherapeutic drug level above therapeutic [Recovered/Resolved]
  - Drug clearance decreased [Recovered/Resolved]
  - Acute kidney injury [Recovered/Resolved]

NARRATIVE: CASE EVENT DATE: 20190623
